FAERS Safety Report 22740756 (Version 4)
Quarter: 2023Q4

REPORT INFORMATION
  Report Type: Spontaneous
  Country: DE (occurrence: DE)
  Receive Date: 20230724
  Receipt Date: 20231006
  Transmission Date: 20240110
  Serious: Yes (Hospitalization, Other)
  Sender: FDA-Public Use
  Company Number: DE-002147023-NVSC2023DE150983

PATIENT
  Sex: Female

DRUGS (2)
  1. ADAKVEO [Suspect]
     Active Substance: CRIZANLIZUMAB-TMCA
     Indication: Sickle cell anaemia with crisis
     Dosage: 3 VIALS (INFUSION)
     Route: 042
     Dates: start: 202111
  2. HYDROXYUREA [Concomitant]
     Active Substance: HYDROXYUREA
     Indication: Sickle cell anaemia with crisis
     Dosage: UNK
     Route: 065

REACTIONS (5)
  - Mental disorder [Unknown]
  - Pain [Unknown]
  - Sickle cell anaemia with crisis [Recovered/Resolved]
  - Fatigue [Recovered/Resolved]
  - Fatigue [Unknown]

NARRATIVE: CASE EVENT DATE: 20230101
